FAERS Safety Report 5369259-0 (Version None)
Quarter: 2007Q2

REPORT INFORMATION
  Report Type: 
  Country: None (occurrence: None)
  Receive Date: 20070625
  Receipt Date: 20070620
  Transmission Date: 20071010
  Serious: Yes (Other)
  Sender: FDA-Public Use
  Company Number: US-ELI_LILLY_AND_COMPANY-US200704005422

PATIENT
  Age: 42 Year
  Sex: Female
  Weight: 86.167 kg

DRUGS (4)
  1. CYMBALTA [Suspect]
     Indication: DEPRESSION
     Dosage: 30 MG, DAILY (1/D)
     Dates: start: 20070405, end: 20070419
  2. CYMBALTA [Suspect]
     Dosage: 60 MG, UNK
     Dates: start: 20070420, end: 20070423
  3. TOPAMAX [Concomitant]
     Indication: MIGRAINE
     Dosage: 200 MG, UNK
     Dates: start: 20060901
  4. HYDROCHLOROTHIAZIDE [Concomitant]
     Indication: HYPERTENSION
     Dosage: 25 MG, UNK
     Dates: start: 20030101

REACTIONS (2)
  - ALANINE AMINOTRANSFERASE INCREASED [None]
  - ASPARTATE AMINOTRANSFERASE INCREASED [None]
